FAERS Safety Report 9151325 (Version 1)
Quarter: 2013Q1

REPORT INFORMATION
  Report Type: Spontaneous
  Country: US (occurrence: US)
  Receive Date: 20130308
  Receipt Date: 20130308
  Transmission Date: 20140127
  Serious: Yes (Hospitalization)
  Sender: FDA-Public Use
  Company Number: US-BAYER-2013-028322

PATIENT
  Age: 29 Year
  Sex: Female
  Weight: 77.55 kg

DRUGS (9)
  1. OCELLA [Suspect]
  2. YASMIN [Suspect]
     Indication: MENSTRUATION IRREGULAR
  3. YAZ [Suspect]
     Indication: CONTRACEPTION
  4. AVELOX [Concomitant]
     Dosage: 400 MG, UNK
     Dates: start: 20091124
  5. AMOXICILLIN W/POTASSIUM CLAVULANATE [Concomitant]
     Dosage: 875 MG, UNK
     Dates: start: 20091224
  6. DILAUDID [Concomitant]
  7. TYLENOL [Concomitant]
  8. PERCOCET [Concomitant]
  9. FERROUS SULFATE [Concomitant]

REACTIONS (2)
  - Pulmonary embolism [Recovered/Resolved]
  - Deep vein thrombosis [Recovered/Resolved]
